FAERS Safety Report 6476384-X (Version None)
Quarter: 2009Q4

REPORT INFORMATION
  Report Type: 
  Country: None (occurrence: None)
  Receive Date: 20091207
  Receipt Date: 20091130
  Transmission Date: 20100525
  Serious: Yes (Death)
  Sender: FDA-Public Use
  Company Number: US-BIOGENIDEC-2006BI015303

PATIENT
  Age: 68 Year
  Sex: Male

DRUGS (4)
  1. AVONEX [Suspect]
     Indication: MULTIPLE SCLEROSIS
     Route: 030
     Dates: start: 20051001
  2. FOSAMAX [Concomitant]
  3. VERAPAMIL [Concomitant]
  4. DITROPAN [Concomitant]

REACTIONS (1)
  - PROSTATE CANCER METASTATIC [None]
